FAERS Safety Report 10597326 (Version 1)
Quarter: 2014Q4

REPORT INFORMATION
  Report Type: Spontaneous
  Country: US (occurrence: None)
  Receive Date: 20141120
  Receipt Date: 20141120
  Transmission Date: 20150529
  Serious: Yes (Death)
  Sender: FDA-Public Use
  Company Number: None

PATIENT
  Age: 86 Year
  Sex: Female

DRUGS (1)
  1. STIVARGA [Suspect]
     Active Substance: REGORAFENIB
     Indication: COLON CANCER
     Route: 048
     Dates: start: 20140926, end: 20141109

REACTIONS (5)
  - Memory impairment [None]
  - Mobility decreased [None]
  - Thinking abnormal [None]
  - Balance disorder [None]
  - Alopecia [None]

NARRATIVE: CASE EVENT DATE: 20141110
